FAERS Safety Report 8991445 (Version 1)
Quarter: 2012Q4

REPORT INFORMATION
  Report Type: Report from Study
  Country: CA (occurrence: CA)
  Receive Date: 20121231
  Receipt Date: 20121231
  Transmission Date: 20130627
  Serious: Yes (Other)
  Sender: FDA-Public Use
  Company Number: CA-ROCHE-1169009

PATIENT
  Sex: Female
  Weight: 64.4 kg

DRUGS (7)
  1. OMALIZUMAB [Suspect]
     Indication: ASTHMA
     Route: 058
     Dates: start: 20070307
  2. OMALIZUMAB [Suspect]
     Route: 058
     Dates: start: 20090603
  3. OMALIZUMAB [Suspect]
     Route: 058
     Dates: start: 20090408
  4. OMALIZUMAB [Suspect]
     Route: 058
     Dates: start: 20070309
  5. VENTOLIN [Concomitant]
  6. SYMBICORT [Concomitant]
  7. GUAIFENESIN [Concomitant]

REACTIONS (18)
  - Throat irritation [Unknown]
  - Sinusitis [Unknown]
  - Influenza [Unknown]
  - Pyrexia [Unknown]
  - Blood pressure decreased [Not Recovered/Not Resolved]
  - Lung infection [Unknown]
  - Respiratory tract infection [Unknown]
  - Nasopharyngitis [Unknown]
  - Sinus headache [Unknown]
  - Cough [Unknown]
  - Upper-airway cough syndrome [Unknown]
  - Dry eye [Unknown]
  - Rhinorrhoea [Unknown]
  - Heart rate increased [Unknown]
  - Wheezing [Unknown]
  - Eye pruritus [Unknown]
  - Pruritus [Unknown]
  - Fatigue [Unknown]
